FAERS Safety Report 12176545 (Version 1)
Quarter: 2016Q1

REPORT INFORMATION
  Report Type: Spontaneous
  Country: DE (occurrence: DE)
  Receive Date: 20160315
  Receipt Date: 20160315
  Transmission Date: 20160526
  Serious: Yes (Other)
  Sender: FDA-Public Use
  Company Number: DE-DRREDDYS-GER/GER/16/0077696

PATIENT
  Age: 48 Year
  Sex: Male
  Weight: 83 kg

DRUGS (2)
  1. PANTOPRAZOLE [Suspect]
     Active Substance: PANTOPRAZOLE SODIUM
     Indication: GASTROOESOPHAGEAL REFLUX DISEASE
     Route: 048
     Dates: start: 2011
  2. OMEPRAZOLE. [Suspect]
     Active Substance: OMEPRAZOLE
     Indication: GASTROOESOPHAGEAL REFLUX DISEASE
     Route: 048
     Dates: start: 20140331, end: 20160227

REACTIONS (7)
  - Visual impairment [Not Recovered/Not Resolved]
  - Sleep disorder [Unknown]
  - Tunnel vision [Unknown]
  - Headache [Unknown]
  - Vision blurred [Unknown]
  - Night blindness [Unknown]
  - Photophobia [Unknown]

NARRATIVE: CASE EVENT DATE: 2012
